FAERS Safety Report 6488097-9 (Version None)
Quarter: 2009Q4

REPORT INFORMATION
  Report Type: 
  Country: None (occurrence: None)
  Receive Date: 20091210
  Receipt Date: 20091130
  Transmission Date: 20100525
  Serious: Yes (Hospitalization)
  Sender: FDA-Public Use
  Company Number: IT-TEVA-217107ISR

PATIENT
  Sex: Male

DRUGS (2)
  1. CLARITHROMYCIN [Suspect]
  2. PAROXETINE [Interacting]

REACTIONS (6)
  - DYSKINESIA [None]
  - DYSPHEMIA [None]
  - DYSPNOEA [None]
  - MUSCLE RIGIDITY [None]
  - POTENTIATING DRUG INTERACTION [None]
  - TREMOR [None]
